FAERS Safety Report 20178135 (Version 1)
Quarter: 2021Q4

REPORT INFORMATION
  Report Type: Spontaneous
  Country: US (occurrence: US)
  Receive Date: 20211213
  Receipt Date: 20211213
  Transmission Date: 20220303
  Serious: No
  Sender: FDA-Public Use
  Company Number: US-SANOFI-00884370

PATIENT
  Age: 24 Year
  Sex: Male

DRUGS (2)
  1. DUPIXENT [Suspect]
     Active Substance: DUPILUMAB
     Indication: Dermatitis atopic
     Dosage: UNK
  2. VACUNA PFIZER-BIONTECH COVID-19 [Concomitant]
     Indication: Immunisation
     Dosage: UNK

REACTIONS (3)
  - Flushing [Unknown]
  - Erythema [Unknown]
  - Therapeutic product effect decreased [Unknown]
